FAERS Safety Report 7603723-6 (Version None)
Quarter: 2011Q2

REPORT INFORMATION
  Report Type: 
  Country: None (occurrence: None)
  Receive Date: 20110630
  Receipt Date: 20110614
  Transmission Date: 20111010
  Serious: No
  Sender: FDA-Public Use
  Company Number: 11-357

PATIENT
  Age: 83 Year
  Sex: Male

DRUGS (5)
  1. IBUPROFEN [Suspect]
     Dosage: 400 MG 3X/DAY ORAL
     Route: 048
     Dates: end: 20110530
  2. SIMVASTATIN [Concomitant]
  3. ASPIRIN [Suspect]
     Indication: CARDIOVASCULAR DISORDER
     Dosage: 75 MG/DAY ORAL
     Route: 048
     Dates: end: 20110530
  4. OMACOR [Concomitant]
  5. RAMIPRIL [Concomitant]

REACTIONS (7)
  - PLATELET COUNT DECREASED [None]
  - OESOPHAGITIS ULCERATIVE [None]
  - HAEMATEMESIS [None]
  - GASTROINTESTINAL HAEMORRHAGE [None]
  - GASTRITIS [None]
  - CONFUSIONAL STATE [None]
  - DUODENITIS [None]
